FAERS Safety Report 25779248 (Version 1)
Quarter: 2025Q3

REPORT INFORMATION
  Report Type: Spontaneous
  Country: US (occurrence: None)
  Receive Date: 20250909
  Receipt Date: 20250909
  Transmission Date: 20251021
  Serious: Yes (Death)
  Sender: FDA-CTU
  Company Number: None

PATIENT
  Age: 80 Year
  Sex: Male

DRUGS (1)
  1. DUPIXENT [Suspect]
     Active Substance: DUPILUMAB
     Indication: Dermatitis atopic
     Dosage: 2 ML EVERY TWO WEEKS SUBCUTNEOUS ?
     Route: 058
     Dates: start: 20250821, end: 20250907

REACTIONS (2)
  - Cardiac arrest [None]
  - Renal failure [None]

NARRATIVE: CASE EVENT DATE: 20250907
